FAERS Safety Report 7957950-9 (Version None)
Quarter: 2011Q4

REPORT INFORMATION
  Report Type: 
  Country: None (occurrence: None)
  Receive Date: 20111205
  Receipt Date: 20111128
  Transmission Date: 20120403
  Serious: Yes (Other)
  Sender: FDA-Public Use
  Company Number: CHPA2011US016855

PATIENT
  Age: 73 Year
  Sex: Female

DRUGS (6)
  1. EXCEDRIN PM [Suspect]
     Indication: INSOMNIA
     Dosage: 1 DF, QHS
     Dates: start: 20111001, end: 20111129
  2. LEVOTHYROXINE SODIUM [Concomitant]
     Indication: HYPOTHYROIDISM
     Dosage: UNK DF, UNK
  3. EXCEDRIN PM [Suspect]
     Indication: PROPHYLAXIS
     Dosage: 1 DF, QHS
     Route: 048
     Dates: end: 20111001
  4. VYTORIN [Concomitant]
     Indication: BLOOD CHOLESTEROL INCREASED
     Dosage: UNK DF, UNK
  5. ASPIRIN [Concomitant]
     Indication: HEADACHE
     Dosage: UNK DF, UNK
  6. ANTIHYPERTENSIVES [Concomitant]
     Indication: HYPERTENSION
     Dosage: UNK DF, UNK

REACTIONS (5)
  - AMYOTROPHIC LATERAL SCLEROSIS [None]
  - DYSPHAGIA [None]
  - UNDERDOSE [None]
  - INCORRECT DRUG ADMINISTRATION DURATION [None]
  - WRONG TECHNIQUE IN DRUG USAGE PROCESS [None]
